FAERS Safety Report 18523514 (Version 3)
Quarter: 2021Q3

REPORT INFORMATION
  Report Type: Spontaneous
  Country: US (occurrence: US)
  Receive Date: 20201119
  Receipt Date: 20210930
  Transmission Date: 20211014
  Serious: Yes (Hospitalization, Other)
  Sender: FDA-Public Use
  Company Number: US-PURDUE-USA-2020-0164741

PATIENT
  Sex: Female

DRUGS (3)
  1. TRAMADOL CR TABLETS (RHODES 21?745) [Suspect]
     Active Substance: TRAMADOL
     Indication: ARTHRALGIA
     Route: 065
  2. PERCOCET                           /00446701/ [Suspect]
     Active Substance: ACETAMINOPHEN\OXYCODONE HYDROCHLORIDE\OXYCODONE TEREPHTHALATE
     Indication: SHOULDER OPERATION
     Dosage: UNKNOWN
     Route: 065
  3. OXYCODONE/ ACETAMINOPHEN TABLETS [Suspect]
     Active Substance: ACETAMINOPHEN\OXYCODONE HYDROCHLORIDE
     Indication: ARTHRALGIA
     Dosage: UNK
     Route: 048
     Dates: start: 201709

REACTIONS (12)
  - Sepsis [Unknown]
  - Colostomy [Unknown]
  - Emotional distress [Unknown]
  - Device dependence [Unknown]
  - Large intestine perforation [Unknown]
  - Pneumonia [Unknown]
  - Pain [Unknown]
  - Lung perforation [Unknown]
  - Constipation [Unknown]
  - Surgery [Unknown]
  - Renal failure [Unknown]
  - Hospitalisation [Unknown]
